FAERS Safety Report 5883403-8 (Version None)
Quarter: 2008Q3

REPORT INFORMATION
  Report Type: 
  Country: None (occurrence: None)
  Receive Date: 20080910
  Receipt Date: 20080902
  Transmission Date: 20090109
  Serious: Yes (Other)
  Sender: FDA-Public Use
  Company Number: 2007SP021400

PATIENT
  Age: 68 Year
  Sex: Female

DRUGS (9)
  1. PEGINTERFERON ALFA-2B (S-P) (PEGINTERFERON ALFA-2B) [Suspect]
     Indication: CARCINOID TUMOUR
     Dosage: 80 MCG; QW; SC, 80 MCG; QW;
     Route: 058
     Dates: start: 20040101
  2. PEGINTERFERON ALFA-2B (S-P) (PEGINTERFERON ALFA-2B) [Suspect]
     Indication: CARCINOID TUMOUR
     Dosage: 80 MCG; QW; SC, 80 MCG; QW;
     Route: 058
     Dates: start: 20071010
  3. PEGINTERFERON ALFA-2B (S-P) (PEGINTERFERON ALFA-2B) [Suspect]
     Indication: CARCINOID TUMOUR
     Dosage: 80 MCG; QW; SC, 80 MCG; QW;
     Route: 058
     Dates: start: 20071017
  4. PEGINTERFERON ALFA-2B (S-P) (PEGINTERFERON ALFA-2B) [Suspect]
     Indication: CARCINOID TUMOUR
     Dosage: 80 MCG; QW; SC, 80 MCG; QW;
     Route: 058
     Dates: start: 20071024
  5. COAPROVEL [Concomitant]
  6. IBESARTAN [Concomitant]
  7. PANTOPRAZOLE SODIUM [Concomitant]
  8. SESQUIHYDRATE [Concomitant]
  9. HYDROCHLOROTHIAZIDE [Concomitant]

REACTIONS (4)
  - COLD SWEAT [None]
  - CONVULSION [None]
  - PYREXIA [None]
  - TREMOR [None]
